FAERS Safety Report 4646699-6 (Version None)
Quarter: 2005Q2

REPORT INFORMATION
  Report Type: 
  Country: None (occurrence: None)
  Receive Date: 20050427
  Receipt Date: 20050401
  Transmission Date: 20051028
  Serious: Yes (Hospitalization)
  Sender: FDA-Public Use
  Company Number: US-GLAXOSMITHKLINE-A0552346A

PATIENT
  Age: 29 Year
  Sex: Male

DRUGS (3)
  1. LAMICTAL [Suspect]
     Indication: BIPOLAR DISORDER
     Route: 048
     Dates: start: 20041101, end: 20050327
  2. EFFEXOR [Concomitant]
  3. CLONAZEPAM [Concomitant]

REACTIONS (11)
  - AGITATION [None]
  - DEPRESSED MOOD [None]
  - HEADACHE [None]
  - HEMIPARESIS [None]
  - INTENTIONAL MISUSE [None]
  - IRRITABILITY [None]
  - MOOD SWINGS [None]
  - NERVOUS SYSTEM DISORDER [None]
  - PHOTOPHOBIA [None]
  - SLEEP DISORDER [None]
  - WEIGHT FLUCTUATION [None]
